FAERS Safety Report 7418857-9 (Version None)
Quarter: 2011Q2

REPORT INFORMATION
  Report Type: 
  Country: None (occurrence: None)
  Receive Date: 20110415
  Receipt Date: 20110408
  Transmission Date: 20111010
  Serious: No
  Sender: FDA-Public Use
  Company Number: US-PFIZER INC-2011078954

PATIENT
  Sex: Male

DRUGS (1)
  1. XANAX [Suspect]
     Dosage: UNK

REACTIONS (1)
  - BLOOD ALCOHOL [None]
